FAERS Safety Report 10869911 (Version 5)
Quarter: 2015Q1

REPORT INFORMATION
  Report Type: Spontaneous
  Country: US (occurrence: US)
  Receive Date: 20150226
  Receipt Date: 20150319
  Transmission Date: 20150721
  Serious: Yes (Other)
  Sender: FDA-Public Use
  Company Number: US-PFIZER INC-2015067582

PATIENT
  Age: 75 Year
  Sex: Female
  Weight: 73 kg

DRUGS (8)
  1. OMEPRAZOLE. [Concomitant]
     Active Substance: OMEPRAZOLE
     Indication: GASTROOESOPHAGEAL REFLUX DISEASE
     Dosage: 20 MG, 1X/DAY
     Route: 048
  2. ALENDRONATE SODIUM. [Concomitant]
     Active Substance: ALENDRONATE SODIUM
     Indication: BONE DISORDER
     Dosage: 70 MG, WEEKLY IN SATURDAY MORNING
     Route: 048
  3. CRANBERRY. [Concomitant]
     Active Substance: CRANBERRY
     Indication: INFECTION
     Dosage: 450 MG, 1X/DAY
     Route: 048
  4. EFFEXOR XR [Suspect]
     Active Substance: VENLAFAXINE HYDROCHLORIDE
     Dosage: 2 DF, DAILY
     Route: 048
  5. EFFEXOR XR [Suspect]
     Active Substance: VENLAFAXINE HYDROCHLORIDE
     Indication: DEPRESSION
     Dosage: 3 DF, DAILY
     Route: 048
  6. LISINOPRIL. [Concomitant]
     Active Substance: LISINOPRIL
     Indication: BLOOD PRESSURE ABNORMAL
     Dosage: 20 MG, 1X/DAY
     Route: 048
  7. LEVOTHYROXINE [Concomitant]
     Active Substance: LEVOTHYROXINE
     Indication: THYROID DISORDER
     Dosage: 50 MG, 1X/DAY
     Route: 048
  8. EFFEXOR XR [Suspect]
     Active Substance: VENLAFAXINE HYDROCHLORIDE
     Indication: SLEEP DISORDER
     Dosage: 225 MG, 1X/DAY
     Route: 048

REACTIONS (5)
  - Hallucination, visual [Recovering/Resolving]
  - Oropharyngeal pain [Unknown]
  - Bone disorder [Unknown]
  - Cystitis [Recovered/Resolved]
  - Pharyngitis [Unknown]

NARRATIVE: CASE EVENT DATE: 201412
